FAERS Safety Report 7611736-3 (Version None)
Quarter: 2011Q3

REPORT INFORMATION
  Report Type: 
  Country: None (occurrence: None)
  Receive Date: 20110715
  Receipt Date: 20110705
  Transmission Date: 20111222
  Serious: Yes (Death, Hospitalization)
  Sender: FDA-Public Use
  Company Number: RU-SANOFI-AVENTIS-2011SA043801

PATIENT
  Age: 69 Year
  Sex: Male
  Weight: 90 kg

DRUGS (18)
  1. ACTOVEGIN 10%-NACL [Concomitant]
  2. TORSEMIDE [Concomitant]
  3. CARVEDILOL [Concomitant]
  4. AMIODARONE HCL [Concomitant]
  5. CYSTON KYU [Concomitant]
  6. FUROSEMIDE [Concomitant]
     Dates: start: 20110101
  7. TAMSULOSIN HCL [Concomitant]
  8. MILDRONATE [Concomitant]
  9. NEXIUM [Concomitant]
  10. ENOXAPARIN SODIUM [Concomitant]
     Dates: start: 20110407
  11. DRONEDARONE HCL [Suspect]
     Indication: ATRIAL FIBRILLATION
     Route: 048
     Dates: start: 20101123, end: 20101231
  12. METOPROLOL TARTRATE [Concomitant]
  13. FRAGMIN [Concomitant]
  14. THIORIDAZINE HCL [Concomitant]
  15. ALL OTHER THERAPEUTIC PRODUCTS [Concomitant]
  16. DIGOXIN [Concomitant]
  17. ASPIRIN [Concomitant]
  18. ENALAPRIL MALEATE [Concomitant]

REACTIONS (3)
  - ISCHAEMIC STROKE [None]
  - PERIPHERAL EMBOLISM [None]
  - CARDIAC DEATH [None]
